FAERS Safety Report 11377887 (Version 1)
Quarter: 2015Q3

REPORT INFORMATION
  Report Type: Spontaneous
  Country: US (occurrence: US)
  Receive Date: 20150811
  Receipt Date: 20150811
  Transmission Date: 20151125
  Serious: No
  Sender: FDA-Public Use
  Company Number: US-ELI_LILLY_AND_COMPANY-US200911000691

PATIENT
  Age: 68 Year
  Sex: Male

DRUGS (14)
  1. DIPYRIDAMOLUM [Concomitant]
  2. ASPIRIN. [Concomitant]
     Active Substance: ASPIRIN
  3. HUMULIN N [Suspect]
     Active Substance: INSULIN HUMAN
     Dosage: 16 U, EACH MORNING
     Dates: start: 20091028
  4. NOVOLIN [Concomitant]
     Active Substance: INSULIN HUMAN
  5. ZOCOR [Concomitant]
     Active Substance: SIMVASTATIN
  6. HIZAAR [Concomitant]
     Active Substance: HYDROCHLOROTHIAZIDE\LOSARTAN POTASSIUM
  7. ANTIDINE [Concomitant]
  8. VITAMIN D [Concomitant]
     Active Substance: CHOLECALCIFEROL
     Dosage: UNK, 2/D
  9. CARVEDILOL. [Concomitant]
     Active Substance: CARVEDILOL
  10. CLONAZEPAM. [Concomitant]
     Active Substance: CLONAZEPAM
  11. HUMULIN N [Suspect]
     Active Substance: INSULIN HUMAN
     Dosage: 22 U, EACH EVENING
     Dates: start: 20091028
  12. AVANDIA [Concomitant]
     Active Substance: ROSIGLITAZONE MALEATE
  13. AMLODIPINE [Concomitant]
     Active Substance: AMLODIPINE BESYLATE
  14. IRON [Concomitant]
     Active Substance: IRON
     Dosage: UNK, OTHER
     Route: 058

REACTIONS (3)
  - Wrong drug administered [Not Recovered/Not Resolved]
  - Blood glucose increased [Not Recovered/Not Resolved]
  - Drug dispensing error [Not Recovered/Not Resolved]

NARRATIVE: CASE EVENT DATE: 200910
